FAERS Safety Report 10867549 (Version 1)
Quarter: 2015Q1

REPORT INFORMATION
  Report Type: Spontaneous
  Country: US (occurrence: US)
  Receive Date: 20150225
  Receipt Date: 20150225
  Transmission Date: 20150721
  Serious: Yes (Hospitalization)
  Sender: FDA-Public Use
  Company Number: US-MYLANLABS-2015M1006012

PATIENT

DRUGS (1)
  1. AMPICILLIN AND SULBACTAM [Suspect]
     Active Substance: AMPICILLIN SODIUM\SULBACTAM SODIUM
     Indication: CELLULITIS
     Route: 065

REACTIONS (7)
  - Blood urea increased [None]
  - Neutrophilia [None]
  - Blood creatinine increased [None]
  - Dehydration [None]
  - Hypernatraemia [Unknown]
  - Leukocytosis [None]
  - Acute generalised exanthematous pustulosis [Recovering/Resolving]
